FAERS Safety Report 17681533 (Version 1)
Quarter: 2020Q2

REPORT INFORMATION
  Report Type: Spontaneous
  Country: US (occurrence: US)
  Receive Date: 20200417
  Receipt Date: 20200417
  Transmission Date: 20200714
  Serious: Yes (Other)
  Sender: FDA-Public Use
  Company Number: NVSC2020US101595

PATIENT
  Age: 62 Year
  Sex: Male

DRUGS (2)
  1. DABRAFENIB [Suspect]
     Active Substance: DABRAFENIB
     Indication: INFECTIOUS PLEURAL EFFUSION
     Dosage: UNK
     Route: 065
  2. TRAMETINIB [Suspect]
     Active Substance: TRAMETINIB
     Indication: INFECTIOUS PLEURAL EFFUSION
     Dosage: UNK
     Route: 065

REACTIONS (3)
  - Infectious pleural effusion [Unknown]
  - Disease progression [Unknown]
  - Product use in unapproved indication [Unknown]
